FAERS Safety Report 4902398-4 (Version None)
Quarter: 2006Q1

REPORT INFORMATION
  Report Type: 
  Country: None (occurrence: None)
  Receive Date: 20060207
  Receipt Date: 20051219
  Transmission Date: 20060701
  Serious: No
  Sender: FDA-Public Use
  Company Number: GBWYE248920DEC05

PATIENT
  Sex: Male

DRUGS (10)
  1. ENBREL [Suspect]
     Indication: RHEUMATOID ARTHRITIS
     Dosage: 50MG FREQUENCY UNKNOWN
     Route: 058
     Dates: start: 20051107
  2. METFORMIN HYDROCHLORIDE [Concomitant]
     Dates: start: 20040317
  3. ASPIRIN [Concomitant]
     Dates: start: 20051221
  4. ATORVASTATIN CALCIUM [Concomitant]
     Dates: start: 20050705
  5. SODIUM ALGINATE/SODIUM BICARBONATE [Concomitant]
     Dates: start: 20050420
  6. DICLOFENAC SODIUM [Concomitant]
     Dates: start: 20050420
  7. PERINDOPRIL [Concomitant]
     Dates: start: 20030930
  8. CALCIUM CARBONATE [Concomitant]
     Dates: start: 20030709
  9. RABEPRAZOLE SODIUM [Concomitant]
     Dates: start: 20021001
  10. PREDNISOLONE [Concomitant]

REACTIONS (3)
  - BLOOD URINE PRESENT [None]
  - PLATELET COUNT INCREASED [None]
  - URINE COLOUR ABNORMAL [None]
